FAERS Safety Report 24283346 (Version 2)
Quarter: 2024Q3

REPORT INFORMATION
  Report Type: Report from Study
  Country: JP (occurrence: JP)
  Receive Date: 20240904
  Receipt Date: 20240923
  Transmission Date: 20241016
  Serious: Yes (Life-Threatening)
  Sender: RECORDATI
  Company Number: JP-RECORDATI RARE DISEASE INC.-2024006590

PATIENT

DRUGS (1)
  1. NEOPROFEN [Suspect]
     Active Substance: IBUPROFEN LYSINE
     Indication: Patent ductus arteriosus
     Dosage: 10 MG/KG
     Route: 042
     Dates: start: 20210912, end: 20210912

REACTIONS (1)
  - Pulmonary alveolar haemorrhage [Recovering/Resolving]

NARRATIVE: CASE EVENT DATE: 20210912
